FAERS Safety Report 6146987-0 (Version None)
Quarter: 2009Q2

REPORT INFORMATION
  Report Type: 
  Country: None (occurrence: None)
  Receive Date: 20090407
  Receipt Date: 20090401
  Transmission Date: 20091009
  Serious: Yes (Hospitalization)
  Sender: FDA-Public Use
  Company Number: DE-WYE-G01867108

PATIENT
  Sex: Female
  Weight: 60 kg

DRUGS (12)
  1. TORISEL [Suspect]
     Indication: METASTATIC RENAL CELL CARCINOMA
     Route: 042
     Dates: start: 20080606, end: 20080619
  2. TORISEL [Suspect]
     Route: 042
     Dates: start: 20080717
  3. LYRICA [Concomitant]
  4. MIRTAZAPINE [Concomitant]
  5. VIGANTOLETTEN [Concomitant]
     Dosage: 1 PER DAY
  6. ZOMETA [Concomitant]
     Dosage: 4MG (FREQUENCY UNKNOWN)
     Route: 042
  7. COTRIMEL FORTE [Concomitant]
     Dosage: 1 PER DAY
  8. FENTANYL [Concomitant]
     Dosage: 12?G/H PATCHES
     Route: 062
  9. FENISTIL [Concomitant]
     Indication: PREMEDICATION
     Dosage: 4MG PRIOR TO TORISEL INFUSION
     Route: 042
     Dates: start: 20080606
  10. RANITIDINE [Concomitant]
     Indication: PREMEDICATION
     Dosage: 50MG PRIOR TO TORISEL INFUSION
     Route: 042
     Dates: start: 20080606
  11. THIAMAZOLE [Concomitant]
  12. TORASEMIDE [Concomitant]

REACTIONS (2)
  - GENERAL PHYSICAL HEALTH DETERIORATION [None]
  - PNEUMOCYSTIS JIROVECI INFECTION [None]
